FAERS Safety Report 9083665 (Version 1)
Quarter: 2013Q1

REPORT INFORMATION
  Report Type: Report from Study
  Country: US (occurrence: US)
  Receive Date: 20130131
  Receipt Date: 20130131
  Transmission Date: 20140127
  Serious: No
  Sender: FDA-Public Use
  Company Number: US-ABBOTT-12P-163-1010975-00

PATIENT
  Age: 36 Year
  Sex: Male

DRUGS (3)
  1. HUMIRA [Suspect]
     Indication: CROHN^S DISEASE
     Dates: start: 20121019, end: 20121019
  2. HUMIRA [Suspect]
     Dates: start: 20121102
  3. ASACOL [Concomitant]
     Indication: CROHN^S DISEASE
     Dosage: 2 PILLS

REACTIONS (1)
  - Crohn^s disease [Not Recovered/Not Resolved]
